FAERS Safety Report 4489576-6 (Version None)
Quarter: 2004Q4

REPORT INFORMATION
  Report Type: 
  Country: None (occurrence: None)
  Receive Date: 20041026
  Receipt Date: 20041007
  Transmission Date: 20050328
  Serious: Yes (Death)
  Sender: FDA-Public Use
  Company Number: FR_041004962

PATIENT
  Age: 47 Year
  Sex: Male

DRUGS (1)
  1. PROZAC [Suspect]
     Dosage: 20 MG/1 DAY
     Dates: start: 20000115

REACTIONS (1)
  - COMPLETED SUICIDE [None]
